FAERS Safety Report 21241543 (Version 1)
Quarter: 2022Q3

REPORT INFORMATION
  Report Type: Spontaneous
  Country: NO (occurrence: NO)
  Receive Date: 20220823
  Receipt Date: 20220823
  Transmission Date: 20221027
  Serious: Yes (Hospitalization)
  Sender: FDA-Public Use
  Company Number: None

PATIENT
  Age: 62 Year
  Sex: Female

DRUGS (13)
  1. PREDNISOLONE [Suspect]
     Active Substance: PREDNISOLONE
     Indication: Giant cell arteritis
  2. TOCILIZUMAB [Suspect]
     Active Substance: TOCILIZUMAB
     Indication: Giant cell arteritis
     Dosage: UNIT DOSE, STRENGTH : 162 MG, FREQUENCY TIME : 1 WEEK , DURATION : 10 MONTHS
     Dates: start: 20210201, end: 202112
  3. METHOTREXATE SODIUM [Suspect]
     Active Substance: METHOTREXATE SODIUM
     Indication: Giant cell arteritis
     Dosage: UNIT DOSE: 17.5 MG, FREQUENCY TIME : 1 WEEK, STRENGTH : 17.5 MG, THERAPY START DATE : NASK
     Dates: end: 202201
  4. ASPIRIN [Concomitant]
     Active Substance: ASPIRIN
     Indication: Product used for unknown indication
     Dosage: 75 MG, FREQUENCY TIME: 1 DAY
  5. CALCIUM CARBONATE\CHOLECALCIFEROL [Concomitant]
     Active Substance: CALCIUM CARBONATE\CHOLECALCIFEROL
     Indication: Product used for unknown indication
     Dosage: FOR ACTIVE INGREDIENT CHOLECALCIFEROL THE STRENGTH IS 800 MILLIGRAM . FOR ACTIVE INGREDIENT CALCIUM
  6. ACETAMINOPHEN [Concomitant]
     Active Substance: ACETAMINOPHEN
     Indication: Pain
     Dosage: UNIT DOSE: 1 GRAM, FREQUENCY TIME : 6 HOURS, STRENGTH : 500 MG
  7. METOPROLOL [Concomitant]
     Active Substance: METOPROLOL
     Indication: Product used for unknown indication
     Dosage: UNIT DOSE: 100 MG, FREQUENCY TIME : 1 DAY, STRENGTH : 100 MG
  8. JARDIANCE [Concomitant]
     Active Substance: EMPAGLIFLOZIN
     Indication: Type 2 diabetes mellitus
     Dosage: UNIT DOSE: 10 MG, FREQUENCY TIME : 1 DAY, STRENGTH : 10 MG
  9. ZOCOR [Concomitant]
     Active Substance: SIMVASTATIN
     Indication: Blood cholesterol increased
     Dosage: UNIT DOSE: 10 MG, FREQUENCY TIME : 1 DAY, STRENGTH : 10 MG
  10. Metformin Karo Pharma [Concomitant]
     Indication: Type 2 diabetes mellitus
     Dosage: 500 MG X 2 (MAX X 3 GRAM PER DAY), UNIT DOSE: 500 MG, FREQUENCY TIME : 12 DAYS, STRENGTH : 500 MG
  11. VALTREX [Concomitant]
     Active Substance: VALACYCLOVIR HYDROCHLORIDE
     Indication: Herpes simplex
     Dosage: TO BE USED FOR 2-3 WEEKS, UNIT DOSE: 1 GRAM , FREQUENCY TIME : 12 DAYS, STRENGTH : 500 MG
     Dates: start: 202109, end: 2021
  12. TRUSOPT [Concomitant]
     Active Substance: DORZOLAMIDE HYDROCHLORIDE
     Indication: Product used for unknown indication
     Dosage: UNIT DOSE: 1 DF , FREQUENCY TIME : 12 DAYS, STRENGTH : 20 MG/ML
  13. FOLIC ACID [Concomitant]
     Active Substance: FOLIC ACID
     Indication: Product used for unknown indication
     Dosage: 1 MG EVERY DAY EXCEPT THE METEX-DAY, UNIT DOSE: 1 MG, FREQUENCY TIME : 1 DAY,

REACTIONS (4)
  - Pericarditis infective [Recovering/Resolving]
  - Endocarditis [Recovering/Resolving]
  - Whipple^s disease [Recovering/Resolving]
  - Weight decreased [Recovering/Resolving]

NARRATIVE: CASE EVENT DATE: 20210101
